FAERS Safety Report 9817246 (Version 2)
Quarter: 2014Q1

REPORT INFORMATION
  Report Type: Spontaneous
  Country: IT (occurrence: IT)
  Receive Date: 20140114
  Receipt Date: 20140220
  Transmission Date: 20141002
  Serious: Yes (Hospitalization)
  Sender: FDA-Public Use
  Company Number: IT-ROCHE-1333578

PATIENT
  Age: 73 Year
  Sex: Female

DRUGS (2)
  1. PEGASYS [Suspect]
     Indication: HEPATITIS C ANTIBODY POSITIVE
     Route: 065
     Dates: start: 20131201, end: 20131224
  2. COPEGUS [Suspect]
     Indication: HEPATITIS C ANTIBODY POSITIVE
     Route: 048

REACTIONS (1)
  - Pancytopenia [Recovering/Resolving]
